FAERS Safety Report 7124878-6 (Version None)
Quarter: 2010Q4

REPORT INFORMATION
  Report Type: 
  Country: None (occurrence: None)
  Receive Date: 20101129
  Receipt Date: 20101118
  Transmission Date: 20110411
  Serious: Yes (Death)
  Sender: FDA-Public Use
  Company Number: JP-JNJFOC-20100807141

PATIENT
  Sex: Female
  Weight: 62 kg

DRUGS (12)
  1. REMICADE [Suspect]
     Indication: RHEUMATOID ARTHRITIS
     Dosage: DOSE ALSO REPORTED AS 150 MG
     Route: 042
  2. REMICADE [Suspect]
     Dosage: 4 INFUSIONS ADMINISTERED ON UNKNOWN DATES
     Route: 042
  3. REMICADE [Suspect]
     Dosage: DOSE ALSO REPORTED AS 150 MG; 3 INFUSIONS ON UNKNOWN DATES
     Route: 042
  4. METHOTREXATE [Suspect]
     Indication: RHEUMATOID ARTHRITIS
     Route: 048
  5. METHOTREXATE [Suspect]
     Route: 048
  6. BUCILLAMINE [Concomitant]
     Indication: RHEUMATOID ARTHRITIS
     Route: 048
  7. RIMATIL [Concomitant]
     Indication: RHEUMATOID ARTHRITIS
  8. DIOVAN [Concomitant]
     Indication: HYPERTENSION
  9. CONIEL [Concomitant]
     Indication: HYPERTENSION
     Route: 048
  10. ISCOTIN [Concomitant]
     Indication: ANTIBIOTIC PROPHYLAXIS
     Route: 048
  11. PREDNISOLONE [Concomitant]
  12. BETAMETHASONE [Concomitant]

REACTIONS (7)
  - DUODENAL ULCER HAEMORRHAGE [None]
  - HISTIOCYTOSIS HAEMATOPHAGIC [None]
  - PANCREATITIS ACUTE [None]
  - PANCYTOPENIA [None]
  - PNEUMOCYSTIS JIROVECI PNEUMONIA [None]
  - RENAL FAILURE ACUTE [None]
  - RESPIRATORY FAILURE [None]
